FAERS Safety Report 24266427 (Version 1)
Quarter: 2024Q3

REPORT INFORMATION
  Report Type: Report from Study
  Country: US (occurrence: US)
  Receive Date: 20240830
  Receipt Date: 20240830
  Transmission Date: 20241017
  Serious: Yes (Hospitalization)
  Sender: ABBVIE
  Company Number: US-ABBVIE-5893793

PATIENT
  Age: 60 Year
  Sex: Female

DRUGS (1)
  1. RINVOQ [Suspect]
     Active Substance: UPADACITINIB
     Indication: Psoriatic arthropathy
     Route: 048
     Dates: start: 20221107

REACTIONS (11)
  - Illness [Unknown]
  - Hepatic enzyme increased [Unknown]
  - Hyperhidrosis [Unknown]
  - Asthenia [Unknown]
  - Gastrointestinal disorder [Unknown]
  - Diarrhoea [Unknown]
  - Campylobacter test positive [Unknown]
  - Lymphocyte count decreased [Unknown]
  - Basophil count decreased [Unknown]
  - Abdominal pain upper [Unknown]
  - Pyrexia [Unknown]

NARRATIVE: CASE EVENT DATE: 20240801
